FAERS Safety Report 22397421 (Version 1)
Quarter: 2023Q2

REPORT INFORMATION
  Report Type: Spontaneous
  Country: US (occurrence: None)
  Receive Date: 20230602
  Receipt Date: 20230602
  Transmission Date: 20230722
  Serious: No
  Sender: FDA-Public Use
  Company Number: 2023A097512

PATIENT
  Sex: Female

DRUGS (1)
  1. BYDUREON BCISE [Suspect]
     Active Substance: EXENATIDE
     Route: 058
     Dates: start: 2022

REACTIONS (5)
  - Injection site haemorrhage [Recovered/Resolved]
  - Drug delivery system issue [Unknown]
  - Device malfunction [Unknown]
  - Needle issue [Unknown]
  - Device leakage [Unknown]
